FAERS Safety Report 4294843-5 (Version None)
Quarter: 2004Q1

REPORT INFORMATION
  Report Type: 
  Country: None (occurrence: None)
  Receive Date: 20040216
  Receipt Date: 20030121
  Transmission Date: 20041129
  Serious: No
  Sender: FDA-Public Use
  Company Number: US-GLAXOSMITHKLINE-A0393405A

PATIENT
  Age: 52 Year
  Sex: Female

DRUGS (9)
  1. LAMICTAL [Suspect]
     Indication: BIPOLAR DISORDER
     Dosage: 50MG TWICE PER DAY
     Route: 048
  2. SEROQUEL [Concomitant]
     Dosage: 200MG VARIABLE DOSE
  3. ELAVIL [Concomitant]
  4. OXYCONTIN [Concomitant]
  5. INDERAL [Concomitant]
  6. KLONOPIN [Concomitant]
     Dosage: 2MG AT NIGHT
  7. ZOLOFT [Concomitant]
     Dosage: 25MG THREE TIMES PER DAY
  8. TRILEPTAL [Concomitant]
  9. NEURONTIN [Concomitant]
     Dosage: 300MG TWICE PER DAY

REACTIONS (3)
  - CONTUSION [None]
  - EYE DISORDER [None]
  - MOUTH ULCERATION [None]
